FAERS Safety Report 17902729 (Version 1)
Quarter: 2020Q2

REPORT INFORMATION
  Report Type: Spontaneous
  Country: ES (occurrence: ES)
  Receive Date: 20200616
  Receipt Date: 20200616
  Transmission Date: 20200714
  Serious: Yes (Death, Hospitalization, Other)
  Sender: FDA-Public Use
  Company Number: ES-JNJFOC-20200617400

PATIENT
  Age: 91 Year
  Sex: Female

DRUGS (2)
  1. TRAMADOL/APAP [Suspect]
     Active Substance: ACETAMINOPHEN\TRAMADOL
     Indication: ANALGESIC THERAPY
     Dosage: 2 DOSAGE FORM, EVERY 8 HRS
     Route: 048
     Dates: start: 20190129, end: 20200205
  2. METOTREXATO [METHOTREXATE SODIUM] [Suspect]
     Active Substance: METHOTREXATE SODIUM
     Indication: POLYMYALGIA RHEUMATICA
     Dosage: 7.5 MILLIGRAM, 1/WEEK
     Route: 048
     Dates: start: 20160701, end: 20200210

REACTIONS (2)
  - Pancytopenia [Fatal]
  - Toxic skin eruption [Fatal]

NARRATIVE: CASE EVENT DATE: 20200210
